FAERS Safety Report 8288923-7 (Version None)
Quarter: 2012Q2

REPORT INFORMATION
  Report Type: 
  Country: None (occurrence: None)
  Receive Date: 20120412
  Receipt Date: 20120327
  Transmission Date: 20120825
  Serious: Yes (Death, Life-Threatening, Hospitalization)
  Sender: FDA-Public Use
  Company Number: THQ2012A02572

PATIENT
  Age: 63 Year
  Sex: Male

DRUGS (7)
  1. CRIZOTINIB (ALL OTHER THERAPEUTIC PRODUCTS) [Suspect]
     Indication: NON-SMALL CELL LUNG CANCER
     Dosage: 500 MG (250 MG,2 IN 1 D) PER ORAL
     Route: 048
     Dates: start: 20111213, end: 20120130
  2. METHIMAZOLE [Suspect]
     Indication: HYPERTHYROIDISM
     Dosage: PER ORAL
     Route: 048
     Dates: start: 20010101, end: 20120131
  3. LEVITRA [Concomitant]
  4. OINTMENT (ALL OTHER THERAPEUTIC PRODUCTS) [Concomitant]
  5. LANSOPRAZOLE [Suspect]
     Indication: GASTRIC ULCER
     Dosage: PER ORAL
     Route: 048
     Dates: start: 20100804, end: 20120131
  6. WARFARIN SODIUM [Concomitant]
  7. MAGNESIUM HYDROXIDE, PARAFFIN, LIQUID [Concomitant]

REACTIONS (14)
  - ALTERED STATE OF CONSCIOUSNESS [None]
  - FUNGAL INFECTION [None]
  - BACTERIAL INFECTION [None]
  - RESPIRATORY FAILURE [None]
  - RENAL FAILURE ACUTE [None]
  - GASTROINTESTINAL HAEMORRHAGE [None]
  - HAEMOPTYSIS [None]
  - SPUTUM CULTURE POSITIVE [None]
  - CYANOSIS [None]
  - RESPIRATORY ACIDOSIS [None]
  - PNEUMONITIS [None]
  - PULMONARY OEDEMA [None]
  - SMALL INTESTINAL HAEMORRHAGE [None]
  - HYPERHIDROSIS [None]
